FAERS Safety Report 5417187-4 (Version None)
Quarter: 2007Q3

REPORT INFORMATION
  Report Type: 
  Country: None (occurrence: None)
  Receive Date: 20070816
  Receipt Date: 20070810
  Transmission Date: 20080115
  Serious: Yes (Hospitalization)
  Sender: FDA-Public Use
  Company Number: US-BOEHRINGER INGELHEIM PHARMACEUTICALS, INC.-2007-BP-17854BP

PATIENT
  Sex: Male

DRUGS (26)
  1. SPIRIVA [Suspect]
     Indication: CHRONIC OBSTRUCTIVE PULMONARY DISEASE
     Route: 055
     Dates: start: 20070514
  2. SPIRIVA [Suspect]
     Indication: DYSPNOEA
  3. GLIPIZIDE [Concomitant]
     Indication: DIABETES MELLITUS
  4. DILTIAZEM [Concomitant]
     Indication: HYPERTENSION
  5. MICARDIS [Concomitant]
     Indication: HYPERTENSION
  6. ZOCOR [Concomitant]
     Indication: BLOOD CHOLESTEROL
  7. SYNTHROID [Concomitant]
     Indication: HYPOTHYROIDISM
  8. ACIPHEX EQ [Concomitant]
     Indication: REFLUX GASTRITIS
  9. PAXIL EQ [Concomitant]
     Indication: STRESS
  10. LUNESTA [Concomitant]
     Indication: SLEEP DISORDER
  11. CLARITIN EQ [Concomitant]
     Indication: NASAL CONGESTION
  12. SINGULAIR [Concomitant]
     Indication: SINUS DISORDER
  13. SINGULAIR [Concomitant]
     Indication: MULTIPLE ALLERGIES
  14. ASPIRIN [Concomitant]
  15. MULTI-VITAMIN [Concomitant]
     Indication: SUPPLEMENTATION THERAPY
  16. UROXATRAL [Concomitant]
     Indication: PROSTATE EXAMINATION ABNORMAL
  17. PROSCAR [Concomitant]
     Indication: PROSTATE EXAMINATION ABNORMAL
  18. GLUCOSAMINE CHONDROITIN [Concomitant]
     Indication: ARTHRALGIA
  19. CALCIUM/VITAMIN D [Concomitant]
     Indication: SUPPLEMENTATION THERAPY
  20. IRON [Concomitant]
     Indication: SUPPLEMENTATION THERAPY
  21. XALATAN [Concomitant]
     Indication: GLAUCOMA
     Route: 031
  22. FLONASE [Concomitant]
     Indication: NASAL CONGESTION
  23. TESTOSTERONE [Concomitant]
     Indication: BLOOD TESTOSTERONE DECREASED
  24. PLATINOL [Concomitant]
     Indication: EYE PRURITUS
     Route: 031
  25. KERALAC LOTION [Concomitant]
     Indication: DRY SKIN
     Route: 061
  26. FOSAMAX [Concomitant]
     Indication: RESORPTION BONE INCREASED

REACTIONS (3)
  - BRAIN NEOPLASM [None]
  - COUGH [None]
  - DRY MOUTH [None]
